FAERS Safety Report 4344800-5 (Version None)
Quarter: 2004Q2

REPORT INFORMATION
  Report Type: 
  Country: None (occurrence: None)
  Receive Date: 20040420
  Receipt Date: 20040408
  Transmission Date: 20050107
  Serious: Yes (Hospitalization)
  Sender: FDA-Public Use
  Company Number: US-JNJFOC-20040401693

PATIENT
  Age: 59 Year
  Sex: Female

DRUGS (14)
  1. INFLIXIMAB (INFLIXIMAB, RECOMBINANT) LYOPHILIZED POWDER [Suspect]
     Indication: RHEUMATOID ARTHRITIS
     Dates: start: 20010628
  2. METHOTREXATE [Concomitant]
  3. PLAQUENIL [Concomitant]
  4. PREDNISONE [Concomitant]
  5. MIAACLCIN (CALCITONIN, SALMON)SPRAY [Concomitant]
  6. SEREVENT [Concomitant]
  7. MAXAIR [Concomitant]
  8. FOLIC ACID [Concomitant]
  9. ASPIRIN [Concomitant]
  10. TAMOXIFEN (TAMOXIFEN) [Concomitant]
  11. CALCIUM (ACLCIUM) [Concomitant]
  12. PREVAXID (LANSOPRAZOLE) [Concomitant]
  13. ULTRAM [Concomitant]
  14. DARVOCET [Concomitant]

REACTIONS (1)
  - LIVER DISORDER [None]
